FAERS Safety Report 6413615-6 (Version None)
Quarter: 2009Q4

REPORT INFORMATION
  Report Type: 
  Country: None (occurrence: None)
  Receive Date: 20091026
  Receipt Date: 20091020
  Transmission Date: 20100525
  Serious: Yes (Death)
  Sender: FDA-Public Use
  Company Number: JP-ASTRAZENECA-2009SE16031

PATIENT
  Age: 0 Year
  Sex: Male
  Weight: 0.8 kg

DRUGS (4)
  1. MEROPEN [Suspect]
     Indication: PYREXIA
     Route: 042
  2. AMBISOME [Suspect]
  3. VANCOMYCIN [Concomitant]
  4. FUNGUARD [Concomitant]

REACTIONS (1)
  - RENAL FAILURE [None]
